FAERS Safety Report 5405517-9 (Version None)
Quarter: 2007Q3

REPORT INFORMATION
  Report Type: 
  Country: None (occurrence: None)
  Receive Date: 20070803
  Receipt Date: 20070725
  Transmission Date: 20080115
  Serious: Yes (Other)
  Sender: FDA-Public Use
  Company Number: US-PFIZER INC-2007061823

PATIENT
  Sex: Male
  Weight: 61.2 kg

DRUGS (2)
  1. GEODON [Suspect]
     Indication: HALLUCINATION
     Route: 048
  2. SINEMET [Concomitant]
     Route: 048

REACTIONS (2)
  - GAIT DISTURBANCE [None]
  - SOMNOLENCE [None]
